FAERS Safety Report 8237871-7 (Version None)
Quarter: 2012Q1

REPORT INFORMATION
  Report Type: 
  Country: None (occurrence: None)
  Receive Date: 20120323
  Receipt Date: 20120313
  Transmission Date: 20120608
  Serious: Yes (Life-Threatening)
  Sender: FDA-Public Use
  Company Number: 2012SP013854

PATIENT
  Age: 37 Year
  Sex: Female
  Weight: 50 kg

DRUGS (1)
  1. GANIRELIX ACETATE INJECTION [Suspect]
     Indication: PREVENTION OF PREMATURE OVULATION
     Dosage: 0.25 MG, SC
     Route: 058
     Dates: start: 20100619, end: 20100621

REACTIONS (3)
  - HELLP SYNDROME [None]
  - MATERNAL EXPOSURE DURING PREGNANCY [None]
  - CAESAREAN SECTION [None]
